FAERS Safety Report 10663273 (Version 2)
Quarter: 2014Q4

REPORT INFORMATION
  Report Type: Spontaneous
  Country: FR (occurrence: FR)
  Receive Date: 20141218
  Receipt Date: 20141218
  Transmission Date: 20150529
  Serious: Yes (Hospitalization)
  Sender: FDA-Public Use
  Company Number: PHHY2014FR144920

PATIENT
  Age: 72 Year
  Sex: Female
  Weight: 78 kg

DRUGS (2)
  1. VOLTARENE [Suspect]
     Active Substance: DICLOFENAC SODIUM
     Indication: SCIATICA
     Dosage: 100 MG, ONCE/SINGLE (SINGLE INTAKE)
     Route: 048
     Dates: start: 20141028, end: 20141028
  2. MONOPROST [Concomitant]
     Active Substance: LATANOPROST
     Indication: PRODUCT USED FOR UNKNOWN INDICATION
     Dosage: 1 DF, QD
     Route: 047
     Dates: end: 20141018

REACTIONS (4)
  - Erythema [Recovered/Resolved]
  - Malaise [Recovered/Resolved]
  - Burning sensation [Recovered/Resolved]
  - Vomiting [Recovered/Resolved]

NARRATIVE: CASE EVENT DATE: 20141028
